FAERS Safety Report 5619619-5 (Version None)
Quarter: 2008Q1

REPORT INFORMATION
  Report Type: 
  Country: None (occurrence: None)
  Receive Date: 20080205
  Receipt Date: 20080205
  Transmission Date: 20080703
  Serious: Yes (Other)
  Sender: FDA-Public Use
  Company Number: None

PATIENT
  Age: 44 Year
  Sex: Male
  Weight: 90.7194 kg

DRUGS (3)
  1. LEVAQUIN [Suspect]
     Indication: BRONCHITIS
     Dosage: 750 MG 15 DAYS PO
     Route: 048
     Dates: start: 20050310, end: 20050325
  2. LEVAQUIN [Suspect]
     Indication: SINUSITIS
     Dosage: 750 MG 15 DAYS PO
     Route: 048
     Dates: start: 20050310, end: 20050325
  3. AVELOX [Suspect]
     Dosage: 500 MG 7 DAYS OTHER
     Route: 050
     Dates: start: 20050105, end: 20050112

REACTIONS (3)
  - PAIN [None]
  - SINUSITIS [None]
  - TENDON RUPTURE [None]
